FAERS Safety Report 26071820 (Version 1)
Quarter: 2025Q4

REPORT INFORMATION
  Report Type: Spontaneous
  Country: US (occurrence: US)
  Receive Date: 20251120
  Receipt Date: 20251120
  Transmission Date: 20260117
  Serious: Yes (Other)
  Sender: NOVO NORDISK
  Company Number: US-NOVOPROD-1564616

PATIENT
  Age: 72 Year
  Sex: Male

DRUGS (1)
  1. NOVOLOG MIX 70/30 [Suspect]
     Active Substance: INSULIN ASPART
     Indication: Product used for unknown indication
     Dosage: UNK
     Dates: start: 2001

REACTIONS (4)
  - Limb injury [Unknown]
  - Localised infection [Unknown]
  - Gangrene [Unknown]
  - Product storage error [Unknown]

NARRATIVE: CASE EVENT DATE: 20160101
